FAERS Safety Report 14041263 (Version 1)
Quarter: 2017Q4

REPORT INFORMATION
  Report Type: Report from Study
  Country: US (occurrence: US)
  Receive Date: 20171004
  Receipt Date: 20171004
  Transmission Date: 20180321
  Serious: No
  Sender: FDA-Public Use
  Company Number: US-AMGEN-USASL2016112872

PATIENT
  Age: 87 Year
  Sex: Female

DRUGS (1)
  1. PROLIA [Suspect]
     Active Substance: DENOSUMAB
     Indication: PRODUCT USED FOR UNKNOWN INDICATION
     Dosage: UNK, Q6MO
     Route: 065

REACTIONS (10)
  - Pain in extremity [Unknown]
  - Endodontic procedure [Unknown]
  - Neuropathy peripheral [Unknown]
  - Device failure [Unknown]
  - Hypoaesthesia [Unknown]
  - Tooth disorder [Unknown]
  - Neck pain [Unknown]
  - Jaw disorder [Unknown]
  - Tooth extraction [Unknown]
  - Musculoskeletal pain [Unknown]

NARRATIVE: CASE EVENT DATE: 2016
